FAERS Safety Report 5372950-3 (Version None)
Quarter: 2007Q2

REPORT INFORMATION
  Report Type: 
  Country: None (occurrence: None)
  Receive Date: 20070627
  Receipt Date: 20070615
  Transmission Date: 20071010
  Serious: Yes (Other)
  Sender: FDA-Public Use
  Company Number: US-PFIZER INC-2007050852

PATIENT
  Sex: Female
  Weight: 52.3 kg

DRUGS (6)
  1. CHANTIX [Suspect]
     Indication: EX-SMOKER
  2. ORAL CONTRACEPTIVE NOS [Concomitant]
  3. ALL OTHER THERAPEUTIC PRODUCTS [Concomitant]
     Indication: DYSPEPSIA
  4. TYLENOL [Concomitant]
  5. MUSCLE RELAXANTS [Concomitant]
  6. ANTI-ASTHMATICS [Concomitant]

REACTIONS (6)
  - DIZZINESS [None]
  - FALL [None]
  - GINGIVAL BLEEDING [None]
  - HEADACHE [None]
  - NAUSEA [None]
  - TREMOR [None]
